FAERS Safety Report 7945706-2 (Version None)
Quarter: 2011Q4

REPORT INFORMATION
  Report Type: 
  Country: None (occurrence: None)
  Receive Date: 20111129
  Receipt Date: 20110207
  Transmission Date: 20120403
  Serious: No
  Sender: FDA-Public Use
  Company Number: US-MYLANLABS-2011S1002807

PATIENT
  Age: 28 Year
  Sex: Male

DRUGS (1)
  1. CLONAZEPAM [Suspect]
     Indication: TOURETTE'S DISORDER
     Route: 048
     Dates: start: 20090101

REACTIONS (1)
  - FALSE NEGATIVE INVESTIGATION RESULT [None]
